FAERS Safety Report 5015436-8 (Version None)
Quarter: 2006Q2

REPORT INFORMATION
  Report Type: 
  Country: None (occurrence: None)
  Receive Date: 20060601
  Receipt Date: 19970918
  Transmission Date: 20061013
  Serious: Yes (Life-Threatening, Hospitalization)
  Sender: FDA-Public Use
  Company Number: CDN/97/00530/LEX

PATIENT
  Age: 22 Year
  Sex: Male

DRUGS (3)
  1. CLOZARIL [Suspect]
     Indication: SCHIZOPHRENIFORM DISORDER
     Route: 048
     Dates: start: 19970410, end: 19970917
  2. CLOZARIL [Suspect]
     Dates: start: 20060403, end: 20060521
  3. LITHIUM CARBONATE [Concomitant]

REACTIONS (6)
  - ABDOMINAL PAIN [None]
  - AGRANULOCYTOSIS [None]
  - HICCUPS [None]
  - NEUTROPENIA [None]
  - SOMNOLENCE [None]
  - VOMITING [None]
